FAERS Safety Report 5923587-6 (Version None)
Quarter: 2008Q4

REPORT INFORMATION
  Report Type: 
  Country: None (occurrence: None)
  Receive Date: 20081020
  Receipt Date: 20081011
  Transmission Date: 20090506
  Serious: Yes (Other)
  Sender: FDA-Public Use
  Company Number: JP-ASTRAZENECA-2008AP08000

PATIENT
  Age: 78 Year
  Sex: Female

DRUGS (2)
  1. XYLOCAINE [Suspect]
     Indication: NERVE BLOCK
     Route: 053
  2. NEUROTROPIN [Concomitant]
     Route: 065

REACTIONS (4)
  - BLOOD PRESSURE INCREASED [None]
  - DIZZINESS [None]
  - RASH [None]
  - SHOCK [None]
